FAERS Safety Report 10607289 (Version 2)
Quarter: 2014Q4

REPORT INFORMATION
  Report Type: Spontaneous
  Country: US (occurrence: US)
  Receive Date: 20141125
  Receipt Date: 20141125
  Transmission Date: 20150529
  Serious: Yes (Hospitalization)
  Sender: FDA-Public Use
  Company Number: US-UNITED THERAPEUTICS-UNT-2014-008258

PATIENT
  Age: 60 Year
  Sex: Female
  Weight: 88.44 kg

DRUGS (5)
  1. REVATIO [Concomitant]
     Active Substance: SILDENAFIL CITRATE
     Indication: PRODUCT USED FOR UNKNOWN INDICATION
  2. WARFARIN [Concomitant]
     Active Substance: WARFARIN
     Indication: PRODUCT USED FOR UNKNOWN INDICATION
  3. REMODULIN [Suspect]
     Active Substance: TREPROSTINIL
     Indication: PULMONARY ARTERIAL HYPERTENSION
     Dosage: 0.013 ?G/KG, CONTINUING
     Route: 041
     Dates: start: 20140703
  4. REMODULIN [Suspect]
     Active Substance: TREPROSTINIL
     Dosage: 0.014 ?G/KG, CONTINUING
     Route: 041
     Dates: start: 20140703
  5. REMODULIN [Suspect]
     Active Substance: TREPROSTINIL
     Dosage: 0.017 ?G/KG, CONTINUING
     Route: 041
     Dates: start: 20140703

REACTIONS (13)
  - Injection site haemorrhage [Unknown]
  - Injection site pain [Unknown]
  - Malaise [Unknown]
  - Injection site erythema [Unknown]
  - Injection site pustule [Unknown]
  - Transient ischaemic attack [Unknown]
  - Feeling cold [Unknown]
  - Headache [Unknown]
  - Injection site scar [Unknown]
  - Diarrhoea [Unknown]
  - Nausea [Unknown]
  - Injection site discharge [Unknown]
  - Chills [Unknown]

NARRATIVE: CASE EVENT DATE: 2014
